FAERS Safety Report 8273056-6 (Version None)
Quarter: 2012Q2

REPORT INFORMATION
  Report Type: 
  Country: None (occurrence: None)
  Receive Date: 20120411
  Receipt Date: 20120409
  Transmission Date: 20120825
  Serious: No
  Sender: FDA-Public Use
  Company Number: US-PFIZER INC-2012088117

PATIENT
  Sex: Female

DRUGS (2)
  1. TRAMADOL HCL [Suspect]
     Dosage: UNK
     Dates: end: 20120406
  2. FLECTOR [Suspect]
     Indication: ARTHRITIS
     Dosage: UNK, 2X/DAY
     Dates: start: 20120301

REACTIONS (4)
  - FEELING ABNORMAL [None]
  - ABDOMINAL DISCOMFORT [None]
  - HEADACHE [None]
  - PAIN [None]
